FAERS Safety Report 6082454-0 (Version None)
Quarter: 2009Q1

REPORT INFORMATION
  Report Type: 
  Country: None (occurrence: None)
  Receive Date: 20090218
  Receipt Date: 20090211
  Transmission Date: 20090719
  Serious: Yes (Death, Hospitalization)
  Sender: FDA-Public Use
  Company Number: US-WATSON-2009-01067

PATIENT
  Sex: Female
  Weight: 10.431 kg

DRUGS (14)
  1. FERRLECIT [Suspect]
     Indication: ANAEMIA
     Dosage: 62.5 MG, OVER 30 - 45 MINUTES
     Route: 042
     Dates: start: 20090115, end: 20090115
  2. SODIUM CHLORIDE [Concomitant]
     Indication: DRUG USE FOR UNKNOWN INDICATION
     Dosage: 20 MEQ, DAILY
     Route: 065
     Dates: start: 20080401, end: 20090121
  3. PROCRIT                            /00909301/ [Concomitant]
     Indication: DRUG USE FOR UNKNOWN INDICATION
     Dosage: UNK
     Route: 065
     Dates: start: 20080401, end: 20090121
  4. FER-IN-SOL [Concomitant]
     Indication: DRUG USE FOR UNKNOWN INDICATION
     Dosage: UNK
     Route: 065
     Dates: start: 20080401, end: 20090121
  5. ENALAPRIL [Concomitant]
     Indication: DRUG USE FOR UNKNOWN INDICATION
     Dosage: UNK
     Route: 065
     Dates: start: 20080401, end: 20090121
  6. ROCALTROL [Concomitant]
     Indication: DRUG USE FOR UNKNOWN INDICATION
     Dosage: UNK
     Route: 065
     Dates: start: 20080401, end: 20090121
  7. NEPHRO-VITE                        /01719801/ [Concomitant]
     Indication: DRUG USE FOR UNKNOWN INDICATION
     Dosage: UNK
     Route: 065
     Dates: start: 20080401, end: 20090121
  8. FAMOTIDINE [Concomitant]
     Indication: DRUG USE FOR UNKNOWN INDICATION
     Dosage: UNK
     Route: 065
     Dates: start: 20080401, end: 20090121
  9. FLOVENT [Concomitant]
     Indication: DRUG USE FOR UNKNOWN INDICATION
     Dosage: UNK
     Route: 065
     Dates: start: 20080401, end: 20090121
  10. LACTINEX                           /00203201/ [Concomitant]
     Indication: DRUG USE FOR UNKNOWN INDICATION
     Dosage: UNK
     Route: 065
     Dates: start: 20080401, end: 20090121
  11. ALBUTEROL [Concomitant]
     Indication: DRUG USE FOR UNKNOWN INDICATION
     Dosage: UNK
     Route: 065
     Dates: start: 20080401, end: 20090121
  12. POTASSIUM CHLORIDE [Concomitant]
     Indication: DRUG USE FOR UNKNOWN INDICATION
     Dosage: 5 MEQ, BID
     Route: 048
     Dates: start: 20090120, end: 20090121
  13. CALCIUM CARBONATE [Concomitant]
     Indication: DRUG USE FOR UNKNOWN INDICATION
     Dosage: UNK
     Route: 065
     Dates: start: 20080501, end: 20090121
  14. KAYEXALATE [Concomitant]
     Indication: DRUG USE FOR UNKNOWN INDICATION
     Dosage: UNK
     Route: 065
     Dates: start: 20080501, end: 20090121

REACTIONS (8)
  - COUGH [None]
  - DEATH [None]
  - PETECHIAE [None]
  - PYREXIA [None]
  - RASH GENERALISED [None]
  - RETCHING [None]
  - SWELLING FACE [None]
  - VIRAL INFECTION [None]
